FAERS Safety Report 10616554 (Version 1)
Quarter: 2014Q4

REPORT INFORMATION
  Report Type: Spontaneous
  Country: DE (occurrence: DE)
  Receive Date: 20141201
  Receipt Date: 20141201
  Transmission Date: 20150529
  Serious: Yes (Death, Congenital Anomaly, Other)
  Sender: FDA-Public Use
  Company Number: DE-TEVA-523378GER

PATIENT
  Age: 1 Day
  Sex: Male

DRUGS (13)
  1. BETAMETHASONE [Concomitant]
     Active Substance: BETAMETHASONE
     Indication: MATERNAL THERAPY TO ENHANCE FOETAL LUNG MATURITY
     Dosage: IN WEEK 25+3, 25+4 AND AGAIN IN WEEK 28+0
     Route: 064
  2. ADALAT [Concomitant]
     Active Substance: NIFEDIPINE
     Indication: TOCOLYSIS
     Route: 064
  3. BELOC-ZOK MITE [Concomitant]
     Active Substance: METOPROLOL SUCCINATE
     Indication: RENAL HYPERTENSION
     Route: 064
     Dates: end: 20140114
  4. PROGRAF [Suspect]
     Active Substance: TACROLIMUS\TACROLIMUS ANHYDROUS
     Indication: PROPHYLAXIS AGAINST TRANSPLANT REJECTION
     Dosage: 5.5 MILLIGRAM DAILY; 5.5[MG/D (3-0-2.5 MG/D) / MOTHER SINCE 2007
     Route: 064
     Dates: start: 20130702, end: 20140114
  5. AMLODIPINE [Concomitant]
     Active Substance: AMLODIPINE BESYLATE
     Indication: RENAL HYPERTENSION
     Dosage: 7.5 MILLIGRAM DAILY; 7.5 [MG/D (2.5-0-5) ]
     Route: 064
  6. DAS GESUNDE PLUS - FOLS?URE 600 [Concomitant]
     Indication: PROPHYLAXIS OF NEURAL TUBE DEFECT
     Dosage: .6 MILLIGRAM DAILY;
     Route: 064
     Dates: start: 20130702, end: 20131217
  7. METHYLDOPA. [Suspect]
     Active Substance: METHYLDOPA
     Indication: RENAL HYPERTENSION
     Dosage: 500 MILLIGRAM DAILY; MOTHER SINCE 2010
     Route: 064
     Dates: start: 20130702, end: 20140114
  8. AZATHIOPRINE. [Suspect]
     Active Substance: AZATHIOPRINE
     Indication: PROPHYLAXIS AGAINST TRANSPLANT REJECTION
     Dosage: 100 MILLIGRAM DAILY; MOTHER SINCE 2012. DOSAGE WAS INCREASED DURING PREGNANCY FROM 50 TO 100 MG/D
     Route: 064
     Dates: start: 20130702, end: 20140114
  9. METOPROLOL SUCCINATE. [Suspect]
     Active Substance: METOPROLOL SUCCINATE
     Indication: RENAL HYPERTENSION
     Route: 064
     Dates: start: 20130702, end: 20131217
  10. L-THYROXIN 25 HENNING [Concomitant]
     Indication: HYPOTHYROIDISM
     Dosage: 25 MICROGRAM DAILY;
     Route: 064
     Dates: start: 20130702, end: 20140114
  11. AMPICILLIN [Concomitant]
     Active Substance: AMPICILLIN
     Indication: ANTIBIOTIC PROPHYLAXIS
     Route: 064
     Dates: start: 20140114, end: 20140114
  12. PARTUSISTEN [Concomitant]
     Active Substance: FENOTEROL
     Indication: TOCOLYSIS
     Route: 064
     Dates: start: 20140114, end: 20140114
  13. DEKRISTOL 20000 I.E. [Concomitant]
     Indication: VITAMIN SUPPLEMENTATION
     Dosage: MOTHER: SINCE 2007
     Route: 064
     Dates: start: 20130702, end: 20131217

REACTIONS (5)
  - Congenital cystic lung [Fatal]
  - Hydrops foetalis [Not Recovered/Not Resolved]
  - Death neonatal [Fatal]
  - Foetal exposure during pregnancy [Unknown]
  - Neonatal respiratory failure [Fatal]

NARRATIVE: CASE EVENT DATE: 20140114
